FAERS Safety Report 13065252 (Version 2)
Quarter: 2016Q4

REPORT INFORMATION
  Report Type: Spontaneous
  Country: US (occurrence: US)
  Receive Date: 20161227
  Receipt Date: 20161229
  Transmission Date: 20170207
  Serious: Yes (Hospitalization, Other)
  Sender: FDA-Public Use
  Company Number: US-PFIZER INC-2016591768

PATIENT
  Age: 68 Year
  Sex: Female

DRUGS (2)
  1. AMITRIPTYLINE [Concomitant]
     Active Substance: AMITRIPTYLINE
     Indication: FIBROMYALGIA
     Dosage: UNK
  2. METHYLPREDNISOLONE ACETATE. [Suspect]
     Active Substance: METHYLPREDNISOLONE ACETATE
     Indication: FIBROMYALGIA
     Dosage: 80 MG, EVERY 3 MONTHS
     Route: 030

REACTIONS (8)
  - Hyponatraemia [Unknown]
  - Abnormal behaviour [Unknown]
  - Hypotension [Unknown]
  - Suicidal ideation [Unknown]
  - Major depression [Unknown]
  - Delusional perception [Unknown]
  - Product use issue [Unknown]
  - Substance-induced psychotic disorder [Unknown]
